FAERS Safety Report 13579221 (Version 2)
Quarter: 2017Q3

REPORT INFORMATION
  Report Type: Report from Study
  Country: AU (occurrence: AU)
  Receive Date: 20170525
  Receipt Date: 20170720
  Transmission Date: 20171127
  Serious: Yes (Hospitalization, Other)
  Sender: FDA-Public Use
  Company Number: PHHY2017AU030810

PATIENT
  Sex: Male

DRUGS (1)
  1. SANDOSTATIN LAR DEPOT [Suspect]
     Active Substance: OCTREOTIDE ACETATE
     Indication: CARCINOID SYNDROME
     Dosage: 30 MG, UNK
     Route: 030

REACTIONS (5)
  - Haemoglobin decreased [Unknown]
  - Blood calcium increased [Unknown]
  - Second primary malignancy [Not Recovered/Not Resolved]
  - Leukaemia [Not Recovered/Not Resolved]
  - Neutrophil count decreased [Unknown]
